FAERS Safety Report 9291004 (Version 4)
Quarter: 2014Q4

REPORT INFORMATION
  Report Type: Spontaneous
  Country: US (occurrence: US)
  Receive Date: 20130515
  Receipt Date: 20141114
  Transmission Date: 20150529
  Serious: Yes (Hospitalization, Disabling, Other)
  Sender: FDA-Public Use
  Company Number: US-009507513-1305USA005512

PATIENT
  Sex: Female
  Weight: 115.19 kg

DRUGS (4)
  1. FOSAMAX [Suspect]
     Active Substance: ALENDRONATE SODIUM
     Indication: OSTEOPOROSIS
     Dosage: 10 MG, QD
     Route: 048
     Dates: start: 20001025, end: 20010209
  2. FOSAMAX [Suspect]
     Active Substance: ALENDRONATE SODIUM
     Dosage: 70 MG, QW
     Route: 048
     Dates: start: 20010210, end: 20080809
  3. ALENDRONATE SODIUM. [Suspect]
     Active Substance: ALENDRONATE SODIUM
     Indication: OSTEOPOROSIS
     Dosage: 70 MG, UNK
     Route: 048
     Dates: start: 20080809, end: 20100526
  4. VITAMINS (UNSPECIFIED) [Concomitant]
     Active Substance: VITAMINS
     Indication: ROUTINE HEALTH MAINTENANCE
     Dosage: 2000 UNK, UNK
     Dates: start: 1995

REACTIONS (34)
  - Post procedural infection [Recovered/Resolved]
  - Vertigo [Unknown]
  - Gastrooesophageal reflux disease [Unknown]
  - Knee arthroplasty [Unknown]
  - Hypertension [Unknown]
  - Low turnover osteopathy [Not Recovered/Not Resolved]
  - Rheumatoid arthritis [Unknown]
  - Hypercholesterolaemia [Unknown]
  - Post procedural haematoma [Recovered/Resolved]
  - Blood 25-hydroxycholecalciferol decreased [Unknown]
  - Hypertonic bladder [Unknown]
  - Knee arthroplasty [Unknown]
  - Cholecystectomy [Unknown]
  - Calcium deficiency [Unknown]
  - Cataract [Unknown]
  - Diverticulum [Unknown]
  - Articular calcification [Unknown]
  - Fall [Recovering/Resolving]
  - Type 2 diabetes mellitus [Unknown]
  - Muscle strain [Recovering/Resolving]
  - Sleep apnoea syndrome [Unknown]
  - Femur fracture [Recovered/Resolved]
  - Intramedullary rod insertion [Unknown]
  - Dental prosthesis placement [Unknown]
  - Debridement [Unknown]
  - Urinary tract infection [Recovered/Resolved]
  - Sciatica [Unknown]
  - Back pain [Recovering/Resolving]
  - Rash [Unknown]
  - Humerus fracture [Recovering/Resolving]
  - Adverse event [Unknown]
  - Hysterectomy [Recovered/Resolved]
  - Bursitis [Unknown]
  - Osteoarthritis [Unknown]

NARRATIVE: CASE EVENT DATE: 2001
